FAERS Safety Report 5103785-4 (Version None)
Quarter: 2006Q3

REPORT INFORMATION
  Report Type: 
  Country: None (occurrence: None)
  Receive Date: 20060913
  Receipt Date: 20060829
  Transmission Date: 20061208
  Serious: Yes (Hospitalization)
  Sender: FDA-Public Use
  Company Number: PL-BRISTOL-MYERS SQUIBB COMPANY-13493135

PATIENT
  Age: 75 Year
  Sex: Male
  Weight: 74 kg

DRUGS (8)
  1. CISPLATIN [Suspect]
     Indication: NON-SMALL CELL LUNG CANCER
     Route: 042
     Dates: start: 20060719
  2. GEMCITABINE [Suspect]
     Indication: NON-SMALL CELL LUNG CANCER
     Route: 042
     Dates: start: 20060719
  3. PF-3512676 [Suspect]
     Indication: NON-SMALL CELL LUNG CANCER
     Route: 058
     Dates: start: 20060727
  4. BISOPROLOL FUMARATE [Concomitant]
     Route: 048
  5. IPRATROPIUM BROMIDE [Concomitant]
     Route: 055
  6. SALMETEROL [Concomitant]
     Route: 055
  7. KETOPROFEN [Concomitant]
     Route: 048
     Dates: start: 20060811
  8. MORPHINE SULFATE [Concomitant]
     Route: 048
     Dates: start: 20060812

REACTIONS (1)
  - BRONCHITIS ACUTE [None]
